FAERS Safety Report 25439532 (Version 2)
Quarter: 2025Q3

REPORT INFORMATION
  Report Type: Spontaneous
  Country: JP (occurrence: JP)
  Receive Date: 20250616
  Receipt Date: 20250702
  Transmission Date: 20251021
  Serious: Yes (Hospitalization)
  Sender: EISAI
  Company Number: JP-Eisai-202503127_LEN-EC_P_1

PATIENT
  Age: 51 Year
  Sex: Female

DRUGS (3)
  1. LENVIMA [Suspect]
     Active Substance: LENVATINIB
     Indication: Endometrial cancer
  2. KEYTRUDA [Suspect]
     Active Substance: PEMBROLIZUMAB
     Indication: Endometrial cancer
     Dosage: 13 COURSES
     Route: 041
     Dates: end: 20250508
  3. LEVOTHYROXINE [Concomitant]
     Active Substance: LEVOTHYROXINE
     Indication: Hypothyroidism

REACTIONS (2)
  - Inappropriate antidiuretic hormone secretion [Recovering/Resolving]
  - Hypothyroidism [Unknown]

NARRATIVE: CASE EVENT DATE: 20250605
